FAERS Safety Report 17485710 (Version 4)
Quarter: 2020Q3

REPORT INFORMATION
  Report Type: Spontaneous
  Country: JP (occurrence: JP)
  Receive Date: 20200303
  Receipt Date: 20200917
  Transmission Date: 20201102
  Serious: Yes (Hospitalization, Other)
  Sender: FDA-Public Use
  Company Number: JP-BRISTOL-MYERS SQUIBB COMPANY-BMS-2018-125139

PATIENT
  Age: 71 Year
  Sex: Female
  Weight: 41.6 kg

DRUGS (3)
  1. YERVOY [Suspect]
     Active Substance: IPILIMUMAB
     Indication: METASTATIC RENAL CELL CARCINOMA
     Dosage: 1 MILLIGRAM/KILOGRAM, Q3WK
     Route: 041
     Dates: start: 20180919, end: 20181120
  2. OPDIVO [Suspect]
     Active Substance: NIVOLUMAB
     Indication: METASTATIC RENAL CELL CARCINOMA
     Dosage: 240 MILLIGRAM, Q3WK
     Route: 041
     Dates: start: 20180919, end: 20190618
  3. OPDIVO [Suspect]
     Active Substance: NIVOLUMAB
     Dosage: 240 MILLIGRAM
     Route: 041

REACTIONS (13)
  - Drug eruption [Recovering/Resolving]
  - Hyperlipasaemia [Recovered/Resolved]
  - Dermatitis [Not Recovered/Not Resolved]
  - Enterocolitis [Recovering/Resolving]
  - Prescribed overdose [Unknown]
  - Malaise [Unknown]
  - Hyperamylasaemia [Recovering/Resolving]
  - Pyrexia [Recovered/Resolved]
  - Immune-mediated arthritis [Unknown]
  - Pruritus [Unknown]
  - Diarrhoea [Unknown]
  - Hypothyroidism [Unknown]
  - Blood creatinine increased [Unknown]

NARRATIVE: CASE EVENT DATE: 20180919
